FAERS Safety Report 8633902 (Version 4)
Quarter: 2012Q4

REPORT INFORMATION
  Report Type: 
  Country: MX (occurrence: MX)
  Receive Date: 20120625
  Receipt Date: 20120919
  Transmission Date: 20130627
  Serious: Yes (Death)
  Sender: FDA-Public Use
  Company Number: MX-ALLERGAN-1208646US

PATIENT
  Age: 85 Year
  Sex: Female
  Weight: 57 kg

DRUGS (7)
  1. BOTOX� [Suspect]
     Indication: LEG SPASTICITY
     Dosage: 200 UNITS, single
     Dates: start: 20120612, end: 20120612
  2. BOTOX� [Suspect]
     Indication: ARM SPASTICITY
     Dosage: 200 UNITS, single
     Dates: start: 20120612, end: 20120612
  3. BOTOX� [Suspect]
     Dosage: UNK
     Dates: start: 20101007, end: 20101007
  4. CINEMET [Suspect]
     Indication: DRUG USE FOR UNKNOWN INDICATION
  5. FIFROL [Suspect]
     Indication: DRUG USE FOR UNKNOWN INDICATION
  6. AZILECT [Suspect]
     Indication: DRUG USE FOR UNKNOWN INDICATION
  7. EBIXA [Concomitant]
     Indication: DRUG USE FOR UNKNOWN INDICATION

REACTIONS (2)
  - Choking [Fatal]
  - Dysphagia [Fatal]
